FAERS Safety Report 4784293-7 (Version None)
Quarter: 2005Q3

REPORT INFORMATION
  Report Type: 
  Country: None (occurrence: None)
  Receive Date: 20050928
  Receipt Date: 20050909
  Transmission Date: 20060218
  Serious: No
  Sender: FDA-Public Use
  Company Number: TPA2005A01034

PATIENT
  Age: 54 Year
  Sex: Female
  Weight: 90.7194 kg

DRUGS (8)
  1. ACTOS [Suspect]
     Indication: DIABETES MELLITUS
     Dosage: 30 MG, 2 IN 1 D, PER ORAL
     Route: 048
     Dates: end: 20050809
  2. FLEXERIL (CYCLOBENZAPRINE HYDROCHLORIDE) (30 MILLIGRAM) [Concomitant]
  3. DIOVAN HCT (CO-DIOVAN) (12.5 MILLIGRAM) [Concomitant]
  4. ATENOLOL (ATENOLOL ) (25 MILLIGRAM) [Concomitant]
  5. ZANTAC (RANITIDINE HYDROCHLROIDE ) (150 MILLIGRAM) [Concomitant]
  6. HYOSCGANINE [Concomitant]
  7. EFFEXOR (VENLAFAXINE HYDROCHLORIDE) (150 MILLIGRAM) [Concomitant]
  8. METFORMIN (METFORMIN) (850 MILLIGRAM) [Concomitant]

REACTIONS (2)
  - FEELING ABNORMAL [None]
  - TREATMENT NONCOMPLIANCE [None]
